FAERS Safety Report 8901828 (Version 1)
Quarter: 2012Q4

REPORT INFORMATION
  Report Type: Spontaneous
  Country: US (occurrence: None)
  Receive Date: 20121106
  Receipt Date: 20121106
  Transmission Date: 20130627
  Serious: Yes (Hospitalization, Other)
  Sender: FDA-Public Use
  Company Number: 2012P1061334

PATIENT
  Age: 77 Year
  Sex: Male
  Weight: 63.2 kg

DRUGS (17)
  1. AMIODARONE [Suspect]
     Route: 048
  2. DABIGATRAN [Suspect]
     Indication: CEREBROVASCULAR ACCIDENT PROPHYLAXIS
     Route: 048
  3. DABIGATRAN [Suspect]
     Indication: CEREBROVASCULAR ACCIDENT PROPHYLAXIS
     Route: 048
  4. ASPIRIN [Concomitant]
  5. CITALOPRAM [Concomitant]
  6. DIGOXIN [Concomitant]
  7. FINASTERIDE [Concomitant]
  8. FUROSEMID [Concomitant]
  9. GLIPIZIDE [Concomitant]
  10. LISINOPRIL [Concomitant]
  11. MEGESTROL ACETATE [Concomitant]
  12. METOPROLOL [Concomitant]
  13. MULTIVITAMIN TABLET [Concomitant]
  14. PANTOPRAZOLE [Concomitant]
  15. SENNA TABLETS [Concomitant]
  16. TAMSULOSIN [Concomitant]
  17. INSULIN LISPRO [Concomitant]

REACTIONS (23)
  - Atelectasis [None]
  - Atrial fibrillation [None]
  - Breath sounds abnormal [None]
  - Haemodynamic instability [None]
  - Oesophageal candidiasis [None]
  - Haemothorax [None]
  - Drug interaction [None]
  - Upper gastrointestinal haemorrhage [None]
  - Malaise [None]
  - Nausea [None]
  - Fatigue [None]
  - Heart rate irregular [None]
  - Rhonchi [None]
  - Gastrointestinal sounds abnormal [None]
  - White blood cell count increased [None]
  - Haemoglobin decreased [None]
  - Haematocrit decreased [None]
  - Platelet count increased [None]
  - Creatinine renal clearance decreased [None]
  - Blood albumin decreased [None]
  - International normalised ratio increased [None]
  - Activated partial thromboplastin time prolonged [None]
  - Cardiomegaly [None]
